FAERS Safety Report 6774703-8 (Version None)
Quarter: 2010Q2

REPORT INFORMATION
  Report Type: 
  Country: None (occurrence: None)
  Receive Date: 20100617
  Receipt Date: 20100325
  Transmission Date: 20101027
  Serious: Yes (Other)
  Sender: FDA-Public Use
  Company Number: US-BAYER-201017246NA

PATIENT
  Age: 30 Year
  Sex: Female
  Weight: 57 kg

DRUGS (14)
  1. YAZ [Suspect]
     Indication: CONTRACEPTION
     Route: 048
     Dates: start: 20060101, end: 20090801
  2. YASMIN [Suspect]
     Indication: CONTRACEPTION
     Route: 048
     Dates: start: 20060101, end: 20090801
  3. OCELLA [Suspect]
     Indication: CONTRACEPTION
     Route: 048
     Dates: start: 20060101, end: 20090801
  4. ANTIBIOTICS NOS [Concomitant]
  5. TOPAMAX [Concomitant]
     Indication: MIGRAINE PROPHYLAXIS
     Dates: start: 20070101
  6. FROVA NOS [Concomitant]
     Dates: start: 20040101
  7. MIRENA [Concomitant]
     Route: 015
     Dates: start: 20091001
  8. ZUMIS NOS [Concomitant]
     Dates: start: 20040101
  9. UNKNOWN INHALER [Concomitant]
     Indication: ASTHMA
  10. NSAID'S [Concomitant]
  11. PROTONIX [Concomitant]
     Indication: GASTROOESOPHAGEAL REFLUX DISEASE
  12. LEXAPRO [Concomitant]
  13. XYZAL [Concomitant]
  14. ZOMIG [Concomitant]

REACTIONS (3)
  - GALLBLADDER DISORDER [None]
  - GASTROOESOPHAGEAL REFLUX DISEASE [None]
  - PALPITATIONS [None]
